FAERS Safety Report 17973415 (Version 1)
Quarter: 2020Q3

REPORT INFORMATION
  Report Type: Spontaneous
  Country: CN (occurrence: CN)
  Receive Date: 20200702
  Receipt Date: 20200702
  Transmission Date: 20201103
  Serious: Yes (Other)
  Sender: FDA-Public Use
  Company Number: CN-BAYER-2020-126064

PATIENT
  Age: 51 Year
  Sex: Female

DRUGS (28)
  1. METHYLPREDNISOLONE. [Concomitant]
     Active Substance: METHYLPREDNISOLONE
     Indication: SUSPECTED COVID-19
     Dosage: 20 MG, QD
     Route: 041
     Dates: start: 20200203, end: 20200203
  2. METHYLPREDNISOLONE. [Concomitant]
     Active Substance: METHYLPREDNISOLONE
     Indication: SUSPECTED COVID-19
     Dosage: 80 MG, BID
     Route: 041
     Dates: start: 20200222, end: 20200224
  3. DARUNAVIR AND COBICISTAT [Concomitant]
     Dosage: UNK
     Route: 048
     Dates: start: 20200206, end: 20200216
  4. PIRFENIDONE. [Concomitant]
     Active Substance: PIRFENIDONE
     Dosage: 4 DF, TID
     Route: 048
     Dates: start: 20200220, end: 20200224
  5. VORICONAZOLE. [Concomitant]
     Active Substance: VORICONAZOLE
     Dosage: UNK
     Dates: start: 20200220, end: 20200223
  6. THYMOSIN [Concomitant]
     Active Substance: THYMOSIN
     Indication: SUSPECTED COVID-19
     Dosage: UNK
     Dates: start: 20200220, end: 20200223
  7. ALBUMIN [Concomitant]
     Active Substance: ALBUMIN HUMAN
     Dosage: 20 G, QD
     Dates: start: 20200211, end: 20200219
  8. OSELTAMIVIR [Concomitant]
     Active Substance: OSELTAMIVIR
     Dosage: UNK
     Route: 048
     Dates: start: 20200126
  9. THYMOSIN [Concomitant]
     Active Substance: THYMOSIN
     Indication: SUSPECTED COVID-19
     Dosage: 1.6 MG, BIW
     Route: 058
     Dates: start: 20200130, end: 20200208
  10. METHYLPREDNISOLONE. [Concomitant]
     Active Substance: METHYLPREDNISOLONE
     Indication: SUSPECTED COVID-19
     Dosage: 20 MG, BID
     Route: 041
     Dates: start: 20200220, end: 20200222
  11. XI YAN PING ZHU SHE YE [Concomitant]
     Dosage: 250 MG, QD
     Route: 041
     Dates: start: 20200206, end: 20200219
  12. LINEZOLID. [Concomitant]
     Active Substance: LINEZOLID
     Dosage: UNK
     Dates: start: 20200222, end: 20200224
  13. LIVER PROTECT [Concomitant]
     Dosage: UNK
     Dates: start: 20200220, end: 20200223
  14. HUMAN IMMUNOGLOBULIN [Concomitant]
     Dosage: 15 G, QD
     Route: 041
     Dates: start: 20200206, end: 20200218
  15. ARBIDOL [Concomitant]
     Active Substance: UMIFENOVIR
     Indication: SUSPECTED COVID-19
     Dosage: 2 DF, TID
     Route: 048
     Dates: start: 20200204, end: 20200224
  16. LOPINAVIR AND RITONAVIR [Concomitant]
     Active Substance: LOPINAVIR\RITONAVIR
     Indication: SUSPECTED COVID-19
     Dosage: 2 DF, BID
     Route: 048
     Dates: start: 20200130, end: 20200210
  17. HUMAN IMMUNOGLOBULIN [Concomitant]
     Dosage: 15 G, QD
     Route: 041
     Dates: start: 20200130, end: 20200202
  18. PIRFENIDONE. [Concomitant]
     Active Substance: PIRFENIDONE
     Dosage: 2 DF, TID
     Route: 048
     Dates: start: 20200213, end: 20200219
  19. MEROPENEM. [Concomitant]
     Active Substance: MEROPENEM
     Dosage: UNK
     Dates: start: 20200222, end: 20200224
  20. AVELOX [Suspect]
     Active Substance: MOXIFLOXACIN HYDROCHLORIDE
     Indication: PYREXIA
     Dosage: UNK
     Route: 048
     Dates: start: 20200126, end: 202001
  21. METHYLPREDNISOLONE. [Concomitant]
     Active Substance: METHYLPREDNISOLONE
     Indication: SUSPECTED COVID-19
     Dosage: 40 MG, QD
     Route: 041
     Dates: start: 20200130, end: 20200202
  22. METHYLPREDNISOLONE. [Concomitant]
     Active Substance: METHYLPREDNISOLONE
     Indication: SUSPECTED COVID-19
     Dosage: 40 MG, TID
     Route: 041
     Dates: start: 20200206, end: 20200213
  23. METHYLPREDNISOLONE. [Concomitant]
     Active Substance: METHYLPREDNISOLONE
     Indication: SUSPECTED COVID-19
     Dosage: 40 MG, BID
     Route: 041
     Dates: start: 20200214, end: 20200216
  24. CEFTAZIDIME. [Concomitant]
     Active Substance: CEFTAZIDIME
     Dosage: 2 G, BID
     Route: 048
     Dates: start: 20200210, end: 20200219
  25. LIVER PROTECT [Concomitant]
     Dosage: UNK
     Dates: start: 20200213, end: 20200218
  26. AVELOX [Suspect]
     Active Substance: MOXIFLOXACIN HYDROCHLORIDE
     Indication: SUSPECTED COVID-19
     Dosage: 0.4 G, QD
     Route: 041
     Dates: start: 20200130, end: 20200209
  27. METHYLPREDNISOLONE. [Concomitant]
     Active Substance: METHYLPREDNISOLONE
     Indication: SUSPECTED COVID-19
     Dosage: 40 MG, BID
     Route: 041
     Dates: start: 20200204, end: 20200205
  28. ENOXAPARIN [Concomitant]
     Active Substance: ENOXAPARIN
     Dosage: 4000 U, TID
     Route: 058
     Dates: start: 20200210, end: 20200215

REACTIONS (10)
  - Fibrin D dimer increased [None]
  - Aspartate aminotransferase increased [None]
  - Alanine aminotransferase increased [None]
  - Drug effective for unapproved indication [None]
  - Product use in unapproved indication [None]
  - Blood albumin abnormal [None]
  - Hepatic cyst [None]
  - Infectious pleural effusion [Not Recovered/Not Resolved]
  - Pleural thickening [None]
  - Off label use [None]

NARRATIVE: CASE EVENT DATE: 20200126
